FAERS Safety Report 4266042-4 (Version None)
Quarter: 2004Q1

REPORT INFORMATION
  Report Type: 
  Country: None (occurrence: None)
  Receive Date: 20040106
  Receipt Date: 20031225
  Transmission Date: 20041129
  Serious: Yes (Hospitalization, Other)
  Sender: FDA-Public Use
  Company Number: 234527

PATIENT
  Age: 24 Year
  Sex: Female
  Weight: 44.7 kg

DRUGS (2)
  1. NOVORAPID PENFILL 3 ML (NOVORAPID PENFILL 3 ML) (INSULIN ASPART) SOLUT [Suspect]
     Indication: DIABETES MELLITUS
     Dosage: 22 U, QD, SUBCUTANEOUS
     Route: 058
     Dates: start: 20030717
  2. PROTAPHANE PENFILL HM (GE) 3 ML (INSULIN HUMAN) SUSPENSION FOR INJECTI [Concomitant]

REACTIONS (9)
  - ABORTION SPONTANEOUS [None]
  - COMPLICATIONS OF MATERNAL EXPOSURE TO THERAPEUTIC DRUGS [None]
  - DRUG EXPOSURE DURING PREGNANCY [None]
  - ELECTROCARDIOGRAM ABNORMAL [None]
  - ELECTROCARDIOGRAM PQ INTERVAL [None]
  - HYPOGLYCAEMIA [None]
  - OVERDOSE [None]
  - THROMBOSIS [None]
  - VAGINAL HAEMORRHAGE [None]
